FAERS Safety Report 25265384 (Version 1)
Quarter: 2025Q2

REPORT INFORMATION
  Report Type: Spontaneous
  Country: US (occurrence: US)
  Receive Date: 20250502
  Receipt Date: 20250502
  Transmission Date: 20250716
  Serious: No
  Sender: VERTEX
  Company Number: US-VERTEX PHARMACEUTICALS-2025-006689

PATIENT
  Sex: Female

DRUGS (4)
  1. JOURNAVX [Suspect]
     Active Substance: SUZETRIGINE
     Indication: Back pain
     Route: 048
     Dates: start: 20250419
  2. JOURNAVX [Suspect]
     Active Substance: SUZETRIGINE
     Indication: Arthralgia
  3. IBUPROFEN [Concomitant]
     Active Substance: IBUPROFEN
     Indication: Back pain
  4. IBUPROFEN [Concomitant]
     Active Substance: IBUPROFEN
     Indication: Arthralgia

REACTIONS (3)
  - Feeling abnormal [Not Recovered/Not Resolved]
  - Impaired driving ability [Unknown]
  - Off label use [Unknown]

NARRATIVE: CASE EVENT DATE: 20250401
